FAERS Safety Report 22866739 (Version 3)
Quarter: 2024Q1

REPORT INFORMATION
  Report Type: Spontaneous
  Country: US (occurrence: US)
  Receive Date: 20230825
  Receipt Date: 20240118
  Transmission Date: 20240410
  Serious: Yes (Other)
  Sender: FDA-Public Use
  Company Number: US-002147023-NVSC2023US184447

PATIENT
  Age: 67 Year
  Sex: Female
  Weight: 65.76 kg

DRUGS (1)
  1. LEQVIO [Suspect]
     Active Substance: INCLISIRAN SODIUM
     Indication: Low density lipoprotein increased
     Dosage: 284 MG
     Route: 058
     Dates: start: 20230814

REACTIONS (4)
  - Cerebrovascular accident [Recovering/Resolving]
  - Arthralgia [Not Recovered/Not Resolved]
  - Discomfort [Unknown]
  - Inappropriate schedule of product administration [Unknown]

NARRATIVE: CASE EVENT DATE: 20230818
